FAERS Safety Report 14846333 (Version 6)
Quarter: 2020Q2

REPORT INFORMATION
  Report Type: Report from Study
  Country: CA (occurrence: CA)
  Receive Date: 20180504
  Receipt Date: 20200616
  Transmission Date: 20200713
  Serious: Yes (Other)
  Sender: FDA-Public Use
  Company Number: CA-ROCHE-2116316

PATIENT
  Age: 35 Year
  Sex: Female
  Weight: 69 kg

DRUGS (2)
  1. OCREVUS [Suspect]
     Active Substance: OCRELIZUMAB
     Indication: RELAPSING-REMITTING MULTIPLE SCLEROSIS
     Dosage: 300 MG DAY 0, DAY 14 THEN 600 MG EVERY 6 MONTHS ONGOING: YES
     Route: 042
     Dates: start: 20171109
  2. OCREVUS [Suspect]
     Active Substance: OCRELIZUMAB
     Route: 042

REACTIONS (16)
  - Fall [Recovered/Resolved]
  - Bronchitis [Not Recovered/Not Resolved]
  - Pain in extremity [Not Recovered/Not Resolved]
  - Pain [Not Recovered/Not Resolved]
  - Optic neuritis [Not Recovered/Not Resolved]
  - Fatigue [Unknown]
  - Dizziness [Recovered/Resolved]
  - Rotator cuff syndrome [Unknown]
  - Arthralgia [Not Recovered/Not Resolved]
  - Cough [Recovered/Resolved]
  - Arthralgia [Unknown]
  - Nasopharyngitis [Recovered/Resolved]
  - Infusion related reaction [Recovered/Resolved]
  - Visual impairment [Not Recovered/Not Resolved]
  - Wheezing [Not Recovered/Not Resolved]
  - Sinusitis [Not Recovered/Not Resolved]

NARRATIVE: CASE EVENT DATE: 201808
